FAERS Safety Report 12860477 (Version 1)
Quarter: 2016Q4

REPORT INFORMATION
  Report Type: Report from Study
  Country: MW (occurrence: MW)
  Receive Date: 20161019
  Receipt Date: 20161019
  Transmission Date: 20170207
  Serious: Yes (Death, Other)
  Sender: FDA-Public Use
  Company Number: MW-CIPLA LTD.-2016MW19425

PATIENT

DRUGS (8)
  1. NEVIRAPINE. [Suspect]
     Active Substance: NEVIRAPINE
     Dosage: 200 MG, ONCE DAILY FOR 2 WEEKS AND TWICE DAILY THEREAFTER UNTIL 28 WEEKS
     Route: 063
  2. LAMIVUDINE. [Suspect]
     Active Substance: LAMIVUDINE
     Indication: PROPHYLAXIS AGAINST HIV INFECTION
     Dosage: 4 MG/KG, BID
     Route: 065
  3. NEVIRAPINE. [Suspect]
     Active Substance: NEVIRAPINE
     Indication: PROPHYLAXIS AGAINST HIV INFECTION
     Dosage: UNK, SINGLE DOSE
     Route: 064
  4. NEVIRAPINE. [Suspect]
     Active Substance: NEVIRAPINE
     Dosage: UNK, SINGLE DOSE
     Route: 048
  5. LAMIVUDINE/ZIDOVUDINE [Suspect]
     Active Substance: LAMIVUDINE\ZIDOVUDINE
     Dosage: UNK, BID
     Route: 063
  6. LAMIVUDINE/ZIDOVUDINE [Suspect]
     Active Substance: LAMIVUDINE\ZIDOVUDINE
     Dosage: 150MG/300MG, EVERY 12 HOURS FROM THE ONSET OF LABOR TO 7 DAYS AFTER BIRTH
     Route: 063
  7. LAMIVUDINE/ZIDOVUDINE [Suspect]
     Active Substance: LAMIVUDINE\ZIDOVUDINE
     Indication: PROPHYLAXIS AGAINST HIV INFECTION
     Dosage: 150MG/300MG, EVERY 12 HOURS FROM THE ONSET OF LABOR TO 7 DAYS AFTER BIRTH
     Route: 064
  8. ZIDOVUDINE. [Suspect]
     Active Substance: ZIDOVUDINE
     Indication: PROPHYLAXIS AGAINST HIV INFECTION
     Dosage: 2 MG/KG, BID
     Route: 065

REACTIONS (3)
  - Foetal exposure during delivery [Unknown]
  - Exposure during breast feeding [Unknown]
  - Sepsis neonatal [Fatal]
